FAERS Safety Report 7319291-2 (Version None)
Quarter: 2011Q1

REPORT INFORMATION
  Report Type: 
  Country: None (occurrence: None)
  Receive Date: 20110228
  Receipt Date: 20100118
  Transmission Date: 20110831
  Serious: No
  Sender: FDA-Public Use
  Company Number: A0839950A

PATIENT
  Age: 10 Year
  Sex: Male

DRUGS (7)
  1. CLONIDINE [Concomitant]
  2. VYVANSE [Concomitant]
  3. OXYBUTYNIN [Concomitant]
  4. RISPERDAL [Concomitant]
  5. LAMICTAL [Suspect]
     Indication: BIPOLAR DISORDER
     Dosage: 50MG PER DAY
     Route: 048
     Dates: start: 20090825
  6. DEPAKOTE [Concomitant]
  7. NORVASC [Concomitant]

REACTIONS (2)
  - LIP DISORDER [None]
  - SPEECH DISORDER [None]
